FAERS Safety Report 12227813 (Version 4)
Quarter: 2018Q4

REPORT INFORMATION
  Report Type: Spontaneous
  Country: GB (occurrence: GB)
  Receive Date: 20160401
  Receipt Date: 20181108
  Transmission Date: 20190204
  Serious: Yes (Death, Hospitalization)
  Sender: FDA-Public Use
  Company Number: GB-ROCHE-1734217

PATIENT
  Age: 49 Year
  Sex: Female

DRUGS (6)
  1. MYFENAX [Suspect]
     Active Substance: MYCOPHENOLATE MOFETIL
     Indication: PRODUCT USED FOR UNKNOWN INDICATION
     Route: 065
  2. ADOPORT [Suspect]
     Active Substance: TACROLIMUS
     Route: 065
  3. PREDNISOLON [Suspect]
     Active Substance: PREDNISOLONE
     Indication: IMMUNOSUPPRESSION
     Route: 065
  4. ADOPORT [Suspect]
     Active Substance: TACROLIMUS
     Indication: IMMUNOSUPPRESSION
     Route: 065
  5. ADOPORT [Suspect]
     Active Substance: TACROLIMUS
     Route: 065
  6. ADOPORT [Suspect]
     Active Substance: TACROLIMUS
     Route: 065

REACTIONS (3)
  - Coma [Unknown]
  - Dependence on respirator [Unknown]
  - Dyspnoea [Fatal]
